FAERS Safety Report 20318424 (Version 2)
Quarter: 2022Q1

REPORT INFORMATION
  Report Type: Spontaneous
  Country: US (occurrence: US)
  Receive Date: 20220110
  Receipt Date: 20220216
  Transmission Date: 20220423
  Serious: No
  Sender: FDA-Public Use
  Company Number: US-BIOGEN-2022BI01083985

PATIENT
  Sex: Female

DRUGS (1)
  1. TECFIDERA [Suspect]
     Active Substance: DIMETHYL FUMARATE
     Indication: Multiple sclerosis
     Route: 065
     Dates: start: 20180817

REACTIONS (5)
  - Osteoarthritis [Not Recovered/Not Resolved]
  - Multiple sclerosis relapse [Unknown]
  - Asthenia [Recovered/Resolved]
  - Feeling hot [Unknown]
  - Hypersensitivity [Recovered/Resolved]
